FAERS Safety Report 22617053 (Version 1)
Quarter: 2023Q2

REPORT INFORMATION
  Report Type: Spontaneous
  Country: JP (occurrence: JP)
  Receive Date: 20230620
  Receipt Date: 20230620
  Transmission Date: 20230722
  Serious: Yes (Hospitalization, Other)
  Sender: FDA-Public Use
  Company Number: JP-TAIHO-2023-004662

PATIENT
  Age: 71 Year
  Sex: Male

DRUGS (6)
  1. ABRAXANE [Suspect]
     Active Substance: PACLITAXEL
     Indication: Lung squamous cell carcinoma recurrent
     Dosage: NI, 3 CYCLES
     Route: 041
  2. TS-1 [Suspect]
     Active Substance: GIMERACIL\OTERACIL\TEGAFUR
     Indication: Squamous cell carcinoma of lung
     Dosage: NI, 2 CYCLES
     Route: 048
  3. CISPLATIN [Suspect]
     Active Substance: CISPLATIN
     Indication: Squamous cell carcinoma of lung
     Dosage: NI, 2 CYCLES
  4. DOCETAXEL [Suspect]
     Active Substance: DOCETAXEL
     Indication: Lung squamous cell carcinoma recurrent
     Dosage: NI, 7 CYCLES
  5. OPDIVO [Concomitant]
     Active Substance: NIVOLUMAB
     Indication: Lung squamous cell carcinoma recurrent
     Dosage: NI, 30 CYCLES, WITH SUSPENSION
  6. OPDIVO [Concomitant]
     Active Substance: NIVOLUMAB
     Indication: Lung squamous cell carcinoma metastatic
     Dosage: NI

REACTIONS (1)
  - Myelodysplastic syndrome [Unknown]
